FAERS Safety Report 5309887-1 (Version None)
Quarter: 2007Q2

REPORT INFORMATION
  Report Type: 
  Country: None (occurrence: None)
  Receive Date: 20070427
  Receipt Date: 20070418
  Transmission Date: 20071010
  Serious: Yes (Death)
  Sender: FDA-Public Use
  Company Number: JP-ELI_LILLY_AND_COMPANY-JP200702004751

PATIENT
  Age: 63 Year
  Sex: Male
  Weight: 45 kg

DRUGS (4)
  1. GEMZAR [Suspect]
     Indication: PANCREATIC CARCINOMA
     Dosage: 1490 MG, OTHER
     Route: 042
     Dates: start: 20070131, end: 20070214
  2. LOXONIN [Concomitant]
     Indication: PAIN
     Dosage: 60 MG, 2/D
     Route: 048
     Dates: start: 20061212, end: 20070220
  3. URSOSAN [Concomitant]
     Route: 065
  4. ULCERMIN [Concomitant]
     Route: 065

REACTIONS (3)
  - DIARRHOEA [None]
  - INTESTINAL PERFORATION [None]
  - PERITONITIS [None]
